FAERS Safety Report 7494677-4 (Version None)
Quarter: 2011Q2

REPORT INFORMATION
  Report Type: 
  Country: None (occurrence: None)
  Receive Date: 20110520
  Receipt Date: 20110502
  Transmission Date: 20111010
  Serious: Yes (Hospitalization, Other)
  Sender: FDA-Public Use
  Company Number: US-BAYER-201039912NA

PATIENT
  Age: 46 Year
  Sex: Female
  Weight: 68 kg

DRUGS (13)
  1. SINGULAIR [Concomitant]
     Indication: MULTIPLE ALLERGIES
  2. WELLBUTRIN SR [Concomitant]
     Dosage: 150 MG, HS
     Route: 048
  3. BUPROPION HCL [Concomitant]
     Indication: DEPRESSION
  4. PRILOSEC [Concomitant]
     Dosage: 20 MG, CONT
     Route: 048
  5. WELLBUTRIN SR [Concomitant]
     Dosage: 300 MG, OM
     Route: 048
  6. ZYRTEC-D 12 HOUR [Concomitant]
     Dosage: UNK UNK, CONT
     Route: 048
  7. CETIRIZINE HCL [Concomitant]
     Indication: MULTIPLE ALLERGIES
  8. YASMIN [Suspect]
     Indication: ORAL CONTRACEPTION
     Route: 048
     Dates: start: 20030101
  9. LEVOTHYROXINE SODIUM [Concomitant]
     Dosage: 50 ?G, CONT
     Route: 048
  10. OMEPRAZOLE [Concomitant]
     Dosage: UNK
     Dates: start: 20040101
  11. YASMIN [Suspect]
     Indication: PREMENSTRUAL SYNDROME
  12. POTASSIUM-SPARING AGENTS [Concomitant]
     Dosage: UNK UNK, PRN
  13. ASCORBIC ACID [Concomitant]

REACTIONS (1)
  - DEEP VEIN THROMBOSIS [None]
